FAERS Safety Report 7267206-8 (Version None)
Quarter: 2011Q1

REPORT INFORMATION
  Report Type: 
  Country: None (occurrence: None)
  Receive Date: 20110201
  Receipt Date: 20110119
  Transmission Date: 20110831
  Serious: Yes (Other)
  Sender: FDA-Public Use
  Company Number: ES-ELI_LILLY_AND_COMPANY-ES201101004871

PATIENT
  Sex: Male
  Weight: 70 kg

DRUGS (3)
  1. SINTROM [Concomitant]
     Indication: ATRIAL FIBRILLATION
     Route: 048
  2. ALIMTA [Suspect]
  3. PROGRAF [Concomitant]
     Indication: LIVER TRANSPLANT
     Route: 048

REACTIONS (3)
  - MALAISE [None]
  - TACHYCARDIA [None]
  - HYPOTENSION [None]
